FAERS Safety Report 16346339 (Version 2)
Quarter: 2019Q3

REPORT INFORMATION
  Report Type: Spontaneous
  Country: US (occurrence: US)
  Receive Date: 20190523
  Receipt Date: 20190705
  Transmission Date: 20191004
  Serious: No
  Sender: FDA-Public Use
  Company Number: US-PFIZER INC-2019216730

PATIENT
  Age: 64 Year
  Sex: Male
  Weight: 73.16 kg

DRUGS (1)
  1. VIAGRA [Suspect]
     Active Substance: SILDENAFIL CITRATE
     Indication: PENIS DISORDER
     Dosage: 100 MG, ONCE A DAY

REACTIONS (4)
  - Off label use [Unknown]
  - Product use in unapproved indication [Unknown]
  - Feeling abnormal [Unknown]
  - Expired product administered [Unknown]
